FAERS Safety Report 9094220 (Version 1)
Quarter: 2013Q1

REPORT INFORMATION
  Report Type: Spontaneous
  Country: US (occurrence: None)
  Receive Date: 20130122
  Receipt Date: 20130122
  Transmission Date: 20140127
  Serious: Yes (Disabling, Other)
  Sender: FDA-Public Use
  Company Number: JPI-P-028981

PATIENT
  Age: 39 Year
  Sex: Male

DRUGS (1)
  1. XYREM (500 MILLIGRAM/MILLILITERS, SOLUTION)(SODIUM OXYBATE) [Suspect]
     Indication: CATAPLEXY
     Dosage: (3 GM, 2 IN 1 D)
     Route: 048
     Dates: start: 20081118

REACTIONS (4)
  - Bedridden [None]
  - Prostatic specific antigen increased [None]
  - Hepatic enzyme increased [None]
  - Weight decreased [None]
